FAERS Safety Report 4710182-X (Version None)
Quarter: 2005Q3

REPORT INFORMATION
  Report Type: 
  Country: None (occurrence: None)
  Receive Date: 20050708
  Receipt Date: 20050708
  Transmission Date: 20060218
  Serious: Yes (Other)
  Sender: FDA-Public Use
  Company Number: None

PATIENT
  Age: 76 Year
  Sex: Female
  Weight: 53.0709 kg

DRUGS (8)
  1. REGLAN [Suspect]
     Indication: DYSPEPSIA
     Dosage: 10 MG TABLETS ONE BEFORE EACH MEAL
     Dates: start: 20050504, end: 20050523
  2. VICODIN [Concomitant]
  3. MILK OF MAG [Concomitant]
  4. PROTONIX [Concomitant]
  5. PHENERAGAN [Concomitant]
  6. TYLENOL/CODINE [Concomitant]
  7. VALIUM [Concomitant]
  8. SENAKOT STOOL SOFTENER [Concomitant]

REACTIONS (12)
  - ANOREXIA [None]
  - ANXIETY [None]
  - DIFFICULTY IN WALKING [None]
  - DIZZINESS [None]
  - DROOLING [None]
  - DYSKINESIA [None]
  - DYSPHAGIA [None]
  - MALAISE [None]
  - NERVOUSNESS [None]
  - SPEECH DISORDER [None]
  - TREMOR [None]
  - WEIGHT DECREASED [None]
